FAERS Safety Report 16204813 (Version 2)
Quarter: 2019Q4

REPORT INFORMATION
  Report Type: Report from Study
  Country: EG (occurrence: EG)
  Receive Date: 20190416
  Receipt Date: 20191114
  Transmission Date: 20200122
  Serious: Yes (Death)
  Sender: FDA-Public Use
  Company Number: EG-PFIZER INC-2019156529

PATIENT

DRUGS (6)
  1. METHYLPREDNISOLONE. [Concomitant]
     Active Substance: METHYLPREDNISOLONE
     Dosage: 500 MG, 1X/DAY (BEFORE AND ON DAY OF SURGERY)
     Route: 042
  2. RAPAMUNE [Suspect]
     Active Substance: SIROLIMUS
     Indication: IMMUNOSUPPRESSANT DRUG THERAPY
     Dosage: 10 MG, 1X/DAY (SINGLE ORAL MORNING DOSE)
     Route: 048
  3. CELLCEPT [Suspect]
     Active Substance: MYCOPHENOLATE MOFETIL\MYCOPHENOLATE MOFETIL HYDROCHLORIDE
     Indication: IMMUNOSUPPRESSANT DRUG THERAPY
     Dosage: 1 G, 2X/DAY (BEGUN THE MORNING AFTER SURGERY)
  4. BASILIXIMAB [Concomitant]
     Active Substance: BASILIXIMAB
     Dosage: 20 MG, UNK (AT SURGERY AND ON DAY FOUR POSTOPERATIVE)
     Route: 042
  5. PREDNISOLONE. [Concomitant]
     Active Substance: PREDNISOLONE
     Dosage: 1 MG/KG, DAILY (GRADUALLY TAPERED DOWN TO 0.1 MG/KG BY THE 10TH MONTH POST?TRANSPLANTATION)
     Route: 048
  6. PREDNISOLONE. [Concomitant]
     Active Substance: PREDNISOLONE
     Dosage: 01 MG/KG, DAILY (GRADUALLY TAPERED DOWN)
     Route: 048

REACTIONS (1)
  - Leukopenia [Fatal]
